FAERS Safety Report 20410720 (Version 1)
Quarter: 2022Q1

REPORT INFORMATION
  Report Type: Spontaneous
  Country: US (occurrence: None)
  Receive Date: 20220131
  Receipt Date: 20220131
  Transmission Date: 20220423
  Serious: Yes (Hospitalization)
  Sender: FDA-Public Use
  Company Number: None

PATIENT
  Age: 43 Year
  Sex: Female
  Weight: 53.1 kg

DRUGS (3)
  1. METAXALONE [Suspect]
     Active Substance: METAXALONE
     Indication: Muscle spasms
     Dosage: FREQUENCY : TWICE A DAY;?
     Route: 048
     Dates: start: 20211108, end: 20211225
  2. METAXALONE [Suspect]
     Active Substance: METAXALONE
     Indication: Back pain
  3. METAXALONE [Suspect]
     Active Substance: METAXALONE
     Indication: Arthralgia

REACTIONS (1)
  - Flank pain [None]

NARRATIVE: CASE EVENT DATE: 20211124
